FAERS Safety Report 8030006-5 (Version None)
Quarter: 2012Q1

REPORT INFORMATION
  Report Type: 
  Country: None (occurrence: None)
  Receive Date: 20120109
  Receipt Date: 20120102
  Transmission Date: 20120608
  Serious: Yes (Hospitalization)
  Sender: FDA-Public Use
  Company Number: IT-BRISTOL-MYERS SQUIBB COMPANY-16281248

PATIENT
  Age: 87 Year
  Sex: Male

DRUGS (13)
  1. SALMETEROL [Concomitant]
  2. LEVOTIROXINA [Concomitant]
  3. COUMADIN [Suspect]
     Indication: ATRIAL FIBRILLATION
     Dosage: 1 DOSAGE FORM = 1 UNIT; INTERUPTED:03FEB2011.
     Route: 048
     Dates: start: 20110101
  4. OMEPRAZOLE [Concomitant]
  5. KARVEA [Concomitant]
     Indication: HYPERTENSION
  6. FUROSEMIDE [Concomitant]
  7. CANRENONE [Concomitant]
  8. CORDARONE [Concomitant]
     Indication: ATRIAL FIBRILLATION
  9. AMLODIPINE [Concomitant]
  10. CLONIDINE [Concomitant]
  11. LEVOTHYROXINE SODIUM [Concomitant]
     Indication: THYROIDECTOMY
  12. BISOPROLOL FUMARATE [Concomitant]
     Indication: HYPERTENSION
  13. ASPIRIN [Concomitant]

REACTIONS (2)
  - ANAEMIA [None]
  - MUSCLE HAEMORRHAGE [None]
